FAERS Safety Report 8981371 (Version 5)
Quarter: 2013Q1

REPORT INFORMATION
  Report Type: Spontaneous
  Country: US (occurrence: US)
  Receive Date: 20121221
  Receipt Date: 20130320
  Transmission Date: 20140127
  Serious: Yes (Death, Hospitalization)
  Sender: FDA-Public Use
  Company Number: US-PFIZER INC-2012319891

PATIENT
  Age: 59 Year
  Sex: Male
  Weight: 81.63 kg

DRUGS (8)
  1. SUTENT [Suspect]
     Indication: METASTATIC RENAL CELL CARCINOMA
     Dosage: 50 MG, (42 DAY CYCLE)
     Dates: start: 201201
  2. SUTENT [Suspect]
     Indication: RENAL CANCER
     Dosage: UNK
     Dates: start: 201301
  3. SUTENT [Suspect]
     Indication: RENAL CANCER
     Dosage: 50 MG, 1X/DAY
     Dates: end: 201302
  4. SUTENT [Suspect]
     Indication: MALIGNANT URINARY TRACT NEOPLASM
  5. LITHIUM [Concomitant]
     Indication: BIPOLAR DISORDER
     Dosage: UNK
  6. LEVOTHYROXINE [Concomitant]
     Dosage: 25 UG, UNK
  7. TERAZOSIN [Concomitant]
     Dosage: UNK
  8. METOPROLOL [Concomitant]
     Indication: BLOOD PRESSURE
     Dosage: UNK

REACTIONS (6)
  - Disease progression [Fatal]
  - Metastatic renal cell carcinoma [Fatal]
  - Pain in extremity [Recovered/Resolved]
  - Diarrhoea [Unknown]
  - Vomiting [Unknown]
  - Weight decreased [Unknown]
